FAERS Safety Report 10667640 (Version 3)
Quarter: 2015Q1

REPORT INFORMATION
  Report Type: Spontaneous
  Country: DE (occurrence: DE)
  Receive Date: 20141222
  Receipt Date: 20150224
  Transmission Date: 20150720
  Serious: Yes (Other)
  Sender: FDA-Public Use
  Company Number: DE-UCBSA-2014021924

PATIENT
  Age: 61 Year
  Sex: Male
  Weight: 98 kg

DRUGS (3)
  1. NEUPRO [Suspect]
     Active Substance: ROTIGOTINE
     Indication: PARKINSON^S DISEASE
     Dosage: 4 MG, ONCE DAILY (QD) AT 14 SEVERAL POSITIONS, EXP DATE: DEC-2015
     Route: 062
     Dates: start: 20141007, end: 2015
  2. FENISTIL [Concomitant]
     Active Substance: DIMETHINDENE
     Indication: ERYTHEMA
     Dosage: 1 OR 2 TIMES A DAY
     Route: 003
     Dates: start: 20141204
  3. BEPANTHEN [Concomitant]
     Active Substance: DEXPANTHENOL
     Indication: PRODUCT USED FOR UNKNOWN INDICATION
     Dosage: 1 OR 2 TIMES A DAY
     Route: 003
     Dates: start: 20141204

REACTIONS (10)
  - Pruritus [Not Recovered/Not Resolved]
  - Loss of consciousness [Unknown]
  - Application site discharge [Not Recovered/Not Resolved]
  - Application site erythema [Not Recovered/Not Resolved]
  - Scar [Unknown]
  - Visual impairment [Not Recovered/Not Resolved]
  - Drug dose titration not performed [Unknown]
  - Weight increased [Not Recovered/Not Resolved]
  - Rash [Not Recovered/Not Resolved]
  - Product adhesion issue [Unknown]

NARRATIVE: CASE EVENT DATE: 2014
